FAERS Safety Report 9818863 (Version 1)
Quarter: 2014Q1

REPORT INFORMATION
  Report Type: Spontaneous
  Country: US (occurrence: US)
  Receive Date: 20140115
  Receipt Date: 20140115
  Transmission Date: 20141002
  Serious: Yes (Other)
  Sender: FDA-Public Use
  Company Number: US-UCBSA-108176

PATIENT
  Age: 79 Year
  Sex: Male

DRUGS (1)
  1. CIMZIA [Suspect]
     Indication: POLYARTHRITIS
     Dosage: STRENGTH:200 MG
     Route: 058
     Dates: start: 20131113, end: 20131224

REACTIONS (3)
  - Rash [Not Recovered/Not Resolved]
  - Headache [Not Recovered/Not Resolved]
  - Nausea [Not Recovered/Not Resolved]
